FAERS Safety Report 7329798-X (Version None)
Quarter: 2011Q1

REPORT INFORMATION
  Report Type: 
  Country: None (occurrence: None)
  Receive Date: 20110303
  Receipt Date: 20110221
  Transmission Date: 20110831
  Serious: Yes (Other)
  Sender: FDA-Public Use
  Company Number: US-TEVA-268708USA

PATIENT
  Age: 43 Year
  Sex: Female

DRUGS (3)
  1. TEMOZOLOMIDE [Concomitant]
  2. DEXAMETHASONE SODIUM PHOSPHATE [Suspect]
     Indication: BRAIN NEOPLASM
     Dosage: 9180MG TOTAL DOSE
  3. BEVACIZUMAB [Suspect]
     Indication: BRAIN NEOPLASM
     Dosage: 2 WEEKLY

REACTIONS (4)
  - CUSHINGOID [None]
  - SKIN ULCER [None]
  - MYOPATHY [None]
  - SKIN STRIAE [None]
